FAERS Safety Report 19314070 (Version 1)
Quarter: 2021Q2

REPORT INFORMATION
  Report Type: Spontaneous
  Country: US (occurrence: US)
  Receive Date: 20210527
  Receipt Date: 20210527
  Transmission Date: 20210717
  Serious: Yes (Other)
  Sender: FDA-Public Use
  Company Number: None

PATIENT
  Sex: Female
  Weight: 68.04 kg

DRUGS (8)
  1. ASPIRIN (LOW DOSE) [Concomitant]
  2. CENTRUM SILVER [Concomitant]
     Active Substance: MINERALS\VITAMINS
  3. BETAMETHASONE DIPROPIONATE CREAM USP (AUGMENTED), 0.05% [Suspect]
     Active Substance: BETAMETHASONE DIPROPIONATE
     Dosage: ?          OTHER FREQUENCY:ONCE OR TWICE DAIL;?
     Route: 061
     Dates: start: 20201019, end: 20201121
  4. CARVEDILOL. [Concomitant]
     Active Substance: CARVEDILOL
  5. HYDRALAZINE [Concomitant]
     Active Substance: HYDRALAZINE HYDROCHLORIDE
  6. ATORVASTATIN [Concomitant]
     Active Substance: ATORVASTATIN
  7. COENZYME Q10 [Concomitant]
     Active Substance: DIETARY SUPPLEMENT\UBIDECARENONE
  8. AMLODIPINE [Concomitant]
     Active Substance: AMLODIPINE BESYLATE

REACTIONS (3)
  - Pemphigoid [None]
  - Blister [None]
  - Skin injury [None]
